FAERS Safety Report 24703783 (Version 1)
Quarter: 2024Q4

REPORT INFORMATION
  Report Type: Spontaneous
  Country: IT (occurrence: None)
  Receive Date: 20241206
  Receipt Date: 20241206
  Transmission Date: 20250115
  Serious: Yes (Other)
  Sender: Alvotech
  Company Number: IT-ALVOTECHPMS-2024-ALVOTECHPMS-002694

PATIENT
  Age: 30 Year
  Sex: Female

DRUGS (1)
  1. ADALIMUMAB [Suspect]
     Active Substance: ADALIMUMAB
     Indication: Crohn^s disease
     Route: 065
     Dates: start: 201301, end: 201802

REACTIONS (1)
  - Drug ineffective [Unknown]
